FAERS Safety Report 24128572 (Version 1)
Quarter: 2024Q3

REPORT INFORMATION
  Report Type: Spontaneous
  Country: JP (occurrence: JP)
  Receive Date: 20240723
  Receipt Date: 20240723
  Transmission Date: 20241016
  Serious: Yes (Hospitalization)
  Sender: BAYER
  Company Number: JP-BAYER-2024A106309

PATIENT
  Age: 65 Year
  Sex: Female

DRUGS (2)
  1. IOPROMIDE [Suspect]
     Active Substance: IOPROMIDE
     Indication: Computerised tomogram
     Dosage: 80 ML, ONCE
     Route: 042
     Dates: start: 20240624, end: 20240624
  2. IOPROMIDE [Suspect]
     Active Substance: IOPROMIDE
     Indication: Bladder cancer

REACTIONS (5)
  - Nephropathy toxic [Not Recovered/Not Resolved]
  - Anuria [None]
  - Blood creatinine increased [None]
  - Glomerular filtration rate decreased [None]
  - Renal impairment [None]

NARRATIVE: CASE EVENT DATE: 20240629
